FAERS Safety Report 16679649 (Version 2)
Quarter: 2019Q3

REPORT INFORMATION
  Report Type: Spontaneous
  Country: JP (occurrence: JP)
  Receive Date: 20190807
  Receipt Date: 20190911
  Transmission Date: 20191004
  Serious: Yes (Other)
  Sender: FDA-Public Use
  Company Number: JP-BAYER-2019-141699

PATIENT
  Age: 78 Year
  Sex: Male

DRUGS (8)
  1. NEXAVAR [Suspect]
     Active Substance: SORAFENIB
     Indication: HEPATOCELLULAR CARCINOMA
     Dosage: 200 MG, BID
     Route: 048
  2. XARELTO [Concomitant]
     Active Substance: RIVAROXABAN
  3. HEPAACT [Concomitant]
  4. STIVARGA [Suspect]
     Active Substance: REGORAFENIB
     Indication: HEPATOCELLULAR CARCINOMA
     Dosage: 80 MG, QD
  5. CARBOCISTEINE [Concomitant]
     Active Substance: CARBOCYSTEINE
  6. ASVERIN [RIBAVIRIN] [Concomitant]
  7. VERAPAMIL HYDROCHLORIDE. [Concomitant]
     Active Substance: VERAPAMIL HYDROCHLORIDE
  8. URSODEOXYCHOLIC ACID [Concomitant]
     Active Substance: URSODIOL

REACTIONS (4)
  - Carbohydrate antigen 19-9 increased [Not Recovered/Not Resolved]
  - Hepatocellular carcinoma [Unknown]
  - Infection [Recovered/Resolved]
  - Biloma [Recovered/Resolved]

NARRATIVE: CASE EVENT DATE: 20180908
